FAERS Safety Report 5273767-0 (Version None)
Quarter: 2007Q1

REPORT INFORMATION
  Report Type: 
  Country: None (occurrence: None)
  Receive Date: 20070321
  Receipt Date: 20070321
  Transmission Date: 20070707
  Serious: Yes (Life-Threatening, Hospitalization)
  Sender: FDA-Public Use
  Company Number: None

PATIENT
  Age: 69 Year
  Sex: Male
  Weight: 77.5651 kg

DRUGS (3)
  1. ARANESP [Suspect]
     Dosage: UP TO 160 MCG 2WEEKS SQ
     Route: 058
     Dates: start: 20070105, end: 20070308
  2. EPOGEN [Suspect]
     Dosage: 4000-8000 THREE TIMES WEEKLY SQ
     Route: 058
     Dates: start: 20070314, end: 20070320
  3. VENOFER IRON [Concomitant]

REACTIONS (5)
  - HAEMOGLOBIN DECREASED [None]
  - MALIGNANT NEOPLASM PROGRESSION [None]
  - NO THERAPEUTIC RESPONSE [None]
  - SQUAMOUS CELL CARCINOMA [None]
  - TONSIL CANCER [None]
